FAERS Safety Report 9348747 (Version 1)
Quarter: 2013Q2

REPORT INFORMATION
  Report Type: Report from Study
  Country: KR (occurrence: KR)
  Receive Date: 20130614
  Receipt Date: 20130614
  Transmission Date: 20140414
  Serious: Yes (Hospitalization)
  Sender: FDA-Public Use
  Company Number: KR-MERCK-1304KOR014246

PATIENT
  Age: 48 Year
  Sex: Female
  Weight: 55.7 kg

DRUGS (4)
  1. VORINOSTAT [Suspect]
     Indication: NON-SMALL CELL LUNG CANCER
     Dosage: 400 MG, QD
     Route: 048
     Dates: start: 20130325, end: 20130423
  2. VORINOSTAT [Suspect]
     Dosage: 300 MG, QD
     Route: 048
     Dates: start: 20130426, end: 20130512
  3. CODEINE [Concomitant]
     Indication: COUGH
     Dosage: UNK
  4. ACETAMINOPHEN (+) TRAMADOL HYDROCHLORIDE [Concomitant]
     Indication: CHEST PAIN
     Dosage: 1625 MG/187.5 MGUNK

REACTIONS (5)
  - Diarrhoea [Recovered/Resolved]
  - Fatigue [Recovered/Resolved]
  - Vomiting [Recovered/Resolved]
  - Dizziness [Recovered/Resolved]
  - Headache [Recovered/Resolved]
